FAERS Safety Report 5909428-1 (Version None)
Quarter: 2008Q4

REPORT INFORMATION
  Report Type: 
  Country: None (occurrence: None)
  Receive Date: 20081002
  Receipt Date: 20080915
  Transmission Date: 20090506
  Serious: Yes (Hospitalization)
  Sender: FDA-Public Use
  Company Number: GXKR2008IL08828

PATIENT
  Age: 42 Year
  Sex: Male

DRUGS (1)
  1. CLOZAPINE [Suspect]
     Indication: SCHIZOPHRENIA

REACTIONS (22)
  - ACUTE PULMONARY OEDEMA [None]
  - ASCITES [None]
  - AZOTAEMIA [None]
  - BILIRUBIN CONJUGATED INCREASED [None]
  - BLOOD BILIRUBIN INCREASED [None]
  - CARDIAC FAILURE [None]
  - CONGESTIVE CARDIOMYOPATHY [None]
  - DILATATION VENTRICULAR [None]
  - ELECTROCARDIOGRAM T WAVE INVERSION [None]
  - FATIGUE [None]
  - GAMMA-GLUTAMYLTRANSFERASE INCREASED [None]
  - HEPATIC CONGESTION [None]
  - HEPATOMEGALY [None]
  - HYPONATRAEMIA [None]
  - LEFT VENTRICULAR DYSFUNCTION [None]
  - OEDEMA PERIPHERAL [None]
  - PITTING OEDEMA [None]
  - RESPIRATORY DISTRESS [None]
  - RIGHT VENTRICULAR DYSFUNCTION [None]
  - SINUS TACHYCARDIA [None]
  - VENOUS PRESSURE JUGULAR INCREASED [None]
  - VENTRICULAR EXTRASYSTOLES [None]
